FAERS Safety Report 9069778 (Version 2)
Quarter: 2013Q2

REPORT INFORMATION
  Report Type: Report from Study
  Country: DE (occurrence: DE)
  Receive Date: 20130131
  Receipt Date: 20130517
  Transmission Date: 20140414
  Serious: Yes (Death)
  Sender: FDA-Public Use
  Company Number: DE-ABBOTT-13P-062-1042621-00

PATIENT
  Age: 71 Year
  Sex: Female
  Weight: 75 kg

DRUGS (9)
  1. HUMIRA [Suspect]
     Indication: PSORIATIC ARTHROPATHY
     Route: 058
     Dates: start: 200810, end: 201210
  2. MARCUMAR [Concomitant]
     Indication: PRODUCT USED FOR UNKNOWN INDICATION
  3. FENOFIBRATE [Concomitant]
     Indication: HYPERCHOLESTEROLAEMIA
  4. HORSE CHESTNUT (VENOSTATIN) [Concomitant]
     Indication: PRODUCT USED FOR UNKNOWN INDICATION
  5. RAMILICH [Concomitant]
     Indication: HYPERTENSION
  6. ACETYLDIGOXINE (NOVODIGAL) [Concomitant]
     Indication: HYPERTENSION
  7. ZOLPIDEM [Concomitant]
     Indication: INSOMNIA
  8. PANTOZOL [Concomitant]
     Indication: DYSPEPSIA
  9. UV THERAPY [Concomitant]
     Indication: PSORIASIS
     Dates: start: 201010, end: 201010

REACTIONS (3)
  - Squamous cell carcinoma of lung [Fatal]
  - Bronchial carcinoma [Fatal]
  - Pneumonia [Fatal]
